FAERS Safety Report 24431961 (Version 1)
Quarter: 2024Q4

REPORT INFORMATION
  Report Type: Spontaneous
  Country: US (occurrence: US)
  Receive Date: 20241014
  Receipt Date: 20241014
  Transmission Date: 20250114
  Serious: No
  Sender: TOLMAR
  Company Number: US-TOLMAR, INC.-24US052699

PATIENT
  Age: 47 Year
  Sex: Female

DRUGS (2)
  1. ELIGARD [Suspect]
     Active Substance: LEUPROLIDE ACETATE
     Indication: Breast cancer female
     Dosage: 22.5 MILLIGRAM, Q 3 MONTH (Q 12 WEEKS)
     Route: 058
     Dates: start: 20240618
  2. ELIGARD [Suspect]
     Active Substance: LEUPROLIDE ACETATE
     Dosage: 22.5 MILLIGRAM, Q 3 MONTH (Q 12 WEEKS)
     Route: 058
     Dates: start: 20240917

REACTIONS (4)
  - Off label use [Not Recovered/Not Resolved]
  - Intercepted product preparation error [Unknown]
  - Device leakage [Unknown]
  - Syringe issue [Unknown]

NARRATIVE: CASE EVENT DATE: 20240618
